FAERS Safety Report 18581207 (Version 3)
Quarter: 2023Q1

REPORT INFORMATION
  Report Type: Spontaneous
  Country: US (occurrence: None)
  Receive Date: 20201204
  Receipt Date: 20230127
  Transmission Date: 20230417
  Serious: Yes (Hospitalization, Other)
  Sender: FDA-Public Use
  Company Number: 2020SF58511

PATIENT
  Age: 15524 Day
  Sex: Male
  Weight: 113.4 kg

DRUGS (177)
  1. FARXIGA [Suspect]
     Active Substance: DAPAGLIFLOZIN PROPANEDIOL
     Indication: Type 2 diabetes mellitus
     Route: 048
     Dates: start: 20150506, end: 20171230
  2. FARXIGA [Suspect]
     Active Substance: DAPAGLIFLOZIN PROPANEDIOL
     Indication: Weight decreased
     Route: 048
     Dates: start: 20150506, end: 20171230
  3. FARXIGA [Suspect]
     Active Substance: DAPAGLIFLOZIN PROPANEDIOL
     Indication: Blood pressure decreased
     Route: 048
     Dates: start: 20150506, end: 20171230
  4. FARXIGA [Suspect]
     Active Substance: DAPAGLIFLOZIN PROPANEDIOL
     Indication: Type 2 diabetes mellitus
     Route: 048
     Dates: start: 20150506
  5. FARXIGA [Suspect]
     Active Substance: DAPAGLIFLOZIN PROPANEDIOL
     Indication: Weight decreased
     Route: 048
     Dates: start: 20150506
  6. FARXIGA [Suspect]
     Active Substance: DAPAGLIFLOZIN PROPANEDIOL
     Indication: Blood pressure decreased
     Route: 048
     Dates: start: 20150506
  7. FARXIGA [Suspect]
     Active Substance: DAPAGLIFLOZIN PROPANEDIOL
     Indication: Type 2 diabetes mellitus
     Route: 048
     Dates: start: 20150501
  8. FARXIGA [Suspect]
     Active Substance: DAPAGLIFLOZIN PROPANEDIOL
     Indication: Weight decreased
     Route: 048
     Dates: start: 20150501
  9. FARXIGA [Suspect]
     Active Substance: DAPAGLIFLOZIN PROPANEDIOL
     Indication: Blood pressure decreased
     Route: 048
     Dates: start: 20150501
  10. FARXIGA [Suspect]
     Active Substance: DAPAGLIFLOZIN PROPANEDIOL
     Indication: Type 2 diabetes mellitus
     Route: 048
     Dates: start: 20150617
  11. FARXIGA [Suspect]
     Active Substance: DAPAGLIFLOZIN PROPANEDIOL
     Indication: Weight decreased
     Route: 048
     Dates: start: 20150617
  12. FARXIGA [Suspect]
     Active Substance: DAPAGLIFLOZIN PROPANEDIOL
     Indication: Blood pressure decreased
     Route: 048
     Dates: start: 20150617
  13. FARXIGA [Suspect]
     Active Substance: DAPAGLIFLOZIN PROPANEDIOL
     Indication: Type 2 diabetes mellitus
     Route: 048
     Dates: start: 20150722
  14. FARXIGA [Suspect]
     Active Substance: DAPAGLIFLOZIN PROPANEDIOL
     Indication: Weight decreased
     Route: 048
     Dates: start: 20150722
  15. FARXIGA [Suspect]
     Active Substance: DAPAGLIFLOZIN PROPANEDIOL
     Indication: Blood pressure decreased
     Route: 048
     Dates: start: 20150722
  16. FARXIGA [Suspect]
     Active Substance: DAPAGLIFLOZIN PROPANEDIOL
     Indication: Type 2 diabetes mellitus
     Route: 048
     Dates: start: 20150824
  17. FARXIGA [Suspect]
     Active Substance: DAPAGLIFLOZIN PROPANEDIOL
     Indication: Weight decreased
     Route: 048
     Dates: start: 20150824
  18. FARXIGA [Suspect]
     Active Substance: DAPAGLIFLOZIN PROPANEDIOL
     Indication: Blood pressure decreased
     Route: 048
     Dates: start: 20150824
  19. FARXIGA [Suspect]
     Active Substance: DAPAGLIFLOZIN PROPANEDIOL
     Indication: Type 2 diabetes mellitus
     Route: 048
     Dates: start: 20151011
  20. FARXIGA [Suspect]
     Active Substance: DAPAGLIFLOZIN PROPANEDIOL
     Indication: Weight decreased
     Route: 048
     Dates: start: 20151011
  21. FARXIGA [Suspect]
     Active Substance: DAPAGLIFLOZIN PROPANEDIOL
     Indication: Blood pressure decreased
     Route: 048
     Dates: start: 20151011
  22. FARXIGA [Suspect]
     Active Substance: DAPAGLIFLOZIN PROPANEDIOL
     Indication: Type 2 diabetes mellitus
     Route: 048
     Dates: start: 20151112
  23. FARXIGA [Suspect]
     Active Substance: DAPAGLIFLOZIN PROPANEDIOL
     Indication: Weight decreased
     Route: 048
     Dates: start: 20151112
  24. FARXIGA [Suspect]
     Active Substance: DAPAGLIFLOZIN PROPANEDIOL
     Indication: Blood pressure decreased
     Route: 048
     Dates: start: 20151112
  25. FARXIGA [Suspect]
     Active Substance: DAPAGLIFLOZIN PROPANEDIOL
     Indication: Type 2 diabetes mellitus
     Route: 048
     Dates: start: 20151215
  26. FARXIGA [Suspect]
     Active Substance: DAPAGLIFLOZIN PROPANEDIOL
     Indication: Weight decreased
     Route: 048
     Dates: start: 20151215
  27. FARXIGA [Suspect]
     Active Substance: DAPAGLIFLOZIN PROPANEDIOL
     Indication: Blood pressure decreased
     Route: 048
     Dates: start: 20151215
  28. FARXIGA [Suspect]
     Active Substance: DAPAGLIFLOZIN PROPANEDIOL
     Indication: Type 2 diabetes mellitus
     Route: 048
     Dates: start: 20151214
  29. FARXIGA [Suspect]
     Active Substance: DAPAGLIFLOZIN PROPANEDIOL
     Indication: Weight decreased
     Route: 048
     Dates: start: 20151214
  30. FARXIGA [Suspect]
     Active Substance: DAPAGLIFLOZIN PROPANEDIOL
     Indication: Blood pressure decreased
     Route: 048
     Dates: start: 20151214
  31. FARXIGA [Suspect]
     Active Substance: DAPAGLIFLOZIN PROPANEDIOL
     Indication: Type 2 diabetes mellitus
     Route: 048
     Dates: start: 20160122
  32. FARXIGA [Suspect]
     Active Substance: DAPAGLIFLOZIN PROPANEDIOL
     Indication: Weight decreased
     Route: 048
     Dates: start: 20160122
  33. FARXIGA [Suspect]
     Active Substance: DAPAGLIFLOZIN PROPANEDIOL
     Indication: Blood pressure decreased
     Route: 048
     Dates: start: 20160122
  34. FARXIGA [Suspect]
     Active Substance: DAPAGLIFLOZIN PROPANEDIOL
     Indication: Type 2 diabetes mellitus
     Route: 048
     Dates: start: 20160215
  35. FARXIGA [Suspect]
     Active Substance: DAPAGLIFLOZIN PROPANEDIOL
     Indication: Weight decreased
     Route: 048
     Dates: start: 20160215
  36. FARXIGA [Suspect]
     Active Substance: DAPAGLIFLOZIN PROPANEDIOL
     Indication: Blood pressure decreased
     Route: 048
     Dates: start: 20160215
  37. FARXIGA [Suspect]
     Active Substance: DAPAGLIFLOZIN PROPANEDIOL
     Indication: Type 2 diabetes mellitus
     Route: 048
     Dates: start: 20160310
  38. FARXIGA [Suspect]
     Active Substance: DAPAGLIFLOZIN PROPANEDIOL
     Indication: Weight decreased
     Route: 048
     Dates: start: 20160310
  39. FARXIGA [Suspect]
     Active Substance: DAPAGLIFLOZIN PROPANEDIOL
     Indication: Blood pressure decreased
     Route: 048
     Dates: start: 20160310
  40. FARXIGA [Suspect]
     Active Substance: DAPAGLIFLOZIN PROPANEDIOL
     Indication: Type 2 diabetes mellitus
     Route: 048
     Dates: start: 20160422
  41. FARXIGA [Suspect]
     Active Substance: DAPAGLIFLOZIN PROPANEDIOL
     Indication: Weight decreased
     Route: 048
     Dates: start: 20160422
  42. FARXIGA [Suspect]
     Active Substance: DAPAGLIFLOZIN PROPANEDIOL
     Indication: Blood pressure decreased
     Route: 048
     Dates: start: 20160422
  43. FARXIGA [Suspect]
     Active Substance: DAPAGLIFLOZIN PROPANEDIOL
     Indication: Type 2 diabetes mellitus
     Route: 048
     Dates: start: 20160520
  44. FARXIGA [Suspect]
     Active Substance: DAPAGLIFLOZIN PROPANEDIOL
     Indication: Weight decreased
     Route: 048
     Dates: start: 20160520
  45. FARXIGA [Suspect]
     Active Substance: DAPAGLIFLOZIN PROPANEDIOL
     Indication: Blood pressure decreased
     Route: 048
     Dates: start: 20160520
  46. FARXIGA [Suspect]
     Active Substance: DAPAGLIFLOZIN PROPANEDIOL
     Indication: Type 2 diabetes mellitus
     Route: 048
     Dates: start: 20160621
  47. FARXIGA [Suspect]
     Active Substance: DAPAGLIFLOZIN PROPANEDIOL
     Indication: Weight decreased
     Route: 048
     Dates: start: 20160621
  48. FARXIGA [Suspect]
     Active Substance: DAPAGLIFLOZIN PROPANEDIOL
     Indication: Blood pressure decreased
     Route: 048
     Dates: start: 20160621
  49. FARXIGA [Suspect]
     Active Substance: DAPAGLIFLOZIN PROPANEDIOL
     Indication: Type 2 diabetes mellitus
     Route: 048
     Dates: start: 20160720
  50. FARXIGA [Suspect]
     Active Substance: DAPAGLIFLOZIN PROPANEDIOL
     Indication: Weight decreased
     Route: 048
     Dates: start: 20160720
  51. FARXIGA [Suspect]
     Active Substance: DAPAGLIFLOZIN PROPANEDIOL
     Indication: Blood pressure decreased
     Route: 048
     Dates: start: 20160720
  52. FARXIGA [Suspect]
     Active Substance: DAPAGLIFLOZIN PROPANEDIOL
     Indication: Type 2 diabetes mellitus
     Route: 048
     Dates: start: 20160815
  53. FARXIGA [Suspect]
     Active Substance: DAPAGLIFLOZIN PROPANEDIOL
     Indication: Weight decreased
     Route: 048
     Dates: start: 20160815
  54. FARXIGA [Suspect]
     Active Substance: DAPAGLIFLOZIN PROPANEDIOL
     Indication: Blood pressure decreased
     Route: 048
     Dates: start: 20160815
  55. FARXIGA [Suspect]
     Active Substance: DAPAGLIFLOZIN PROPANEDIOL
     Indication: Type 2 diabetes mellitus
     Route: 048
     Dates: start: 20160913
  56. FARXIGA [Suspect]
     Active Substance: DAPAGLIFLOZIN PROPANEDIOL
     Indication: Weight decreased
     Route: 048
     Dates: start: 20160913
  57. FARXIGA [Suspect]
     Active Substance: DAPAGLIFLOZIN PROPANEDIOL
     Indication: Blood pressure decreased
     Route: 048
     Dates: start: 20160913
  58. FARXIGA [Suspect]
     Active Substance: DAPAGLIFLOZIN PROPANEDIOL
     Indication: Type 2 diabetes mellitus
     Route: 048
     Dates: start: 20161015
  59. FARXIGA [Suspect]
     Active Substance: DAPAGLIFLOZIN PROPANEDIOL
     Indication: Weight decreased
     Route: 048
     Dates: start: 20161015
  60. FARXIGA [Suspect]
     Active Substance: DAPAGLIFLOZIN PROPANEDIOL
     Indication: Blood pressure decreased
     Route: 048
     Dates: start: 20161015
  61. FARXIGA [Suspect]
     Active Substance: DAPAGLIFLOZIN PROPANEDIOL
     Indication: Type 2 diabetes mellitus
     Route: 048
     Dates: start: 20161130
  62. FARXIGA [Suspect]
     Active Substance: DAPAGLIFLOZIN PROPANEDIOL
     Indication: Weight decreased
     Route: 048
     Dates: start: 20161130
  63. FARXIGA [Suspect]
     Active Substance: DAPAGLIFLOZIN PROPANEDIOL
     Indication: Blood pressure decreased
     Route: 048
     Dates: start: 20161130
  64. FARXIGA [Suspect]
     Active Substance: DAPAGLIFLOZIN PROPANEDIOL
     Indication: Type 2 diabetes mellitus
     Route: 048
     Dates: start: 20170102
  65. FARXIGA [Suspect]
     Active Substance: DAPAGLIFLOZIN PROPANEDIOL
     Indication: Weight decreased
     Route: 048
     Dates: start: 20170102
  66. FARXIGA [Suspect]
     Active Substance: DAPAGLIFLOZIN PROPANEDIOL
     Indication: Blood pressure decreased
     Route: 048
     Dates: start: 20170102
  67. FARXIGA [Suspect]
     Active Substance: DAPAGLIFLOZIN PROPANEDIOL
     Indication: Type 2 diabetes mellitus
     Route: 048
     Dates: start: 20170131
  68. FARXIGA [Suspect]
     Active Substance: DAPAGLIFLOZIN PROPANEDIOL
     Indication: Weight decreased
     Route: 048
     Dates: start: 20170131
  69. FARXIGA [Suspect]
     Active Substance: DAPAGLIFLOZIN PROPANEDIOL
     Indication: Blood pressure decreased
     Route: 048
     Dates: start: 20170131
  70. FARXIGA [Suspect]
     Active Substance: DAPAGLIFLOZIN PROPANEDIOL
     Indication: Type 2 diabetes mellitus
     Route: 048
     Dates: start: 20170306
  71. FARXIGA [Suspect]
     Active Substance: DAPAGLIFLOZIN PROPANEDIOL
     Indication: Weight decreased
     Route: 048
     Dates: start: 20170306
  72. FARXIGA [Suspect]
     Active Substance: DAPAGLIFLOZIN PROPANEDIOL
     Indication: Blood pressure decreased
     Route: 048
     Dates: start: 20170306
  73. FARXIGA [Suspect]
     Active Substance: DAPAGLIFLOZIN PROPANEDIOL
     Indication: Type 2 diabetes mellitus
     Route: 048
     Dates: start: 20170406
  74. FARXIGA [Suspect]
     Active Substance: DAPAGLIFLOZIN PROPANEDIOL
     Indication: Weight decreased
     Route: 048
     Dates: start: 20170406
  75. FARXIGA [Suspect]
     Active Substance: DAPAGLIFLOZIN PROPANEDIOL
     Indication: Blood pressure decreased
     Route: 048
     Dates: start: 20170406
  76. FARXIGA [Suspect]
     Active Substance: DAPAGLIFLOZIN PROPANEDIOL
     Indication: Type 2 diabetes mellitus
     Route: 048
     Dates: start: 20170606
  77. FARXIGA [Suspect]
     Active Substance: DAPAGLIFLOZIN PROPANEDIOL
     Indication: Weight decreased
     Route: 048
     Dates: start: 20170606
  78. FARXIGA [Suspect]
     Active Substance: DAPAGLIFLOZIN PROPANEDIOL
     Indication: Blood pressure decreased
     Route: 048
     Dates: start: 20170606
  79. FARXIGA [Suspect]
     Active Substance: DAPAGLIFLOZIN PROPANEDIOL
     Indication: Type 2 diabetes mellitus
     Route: 048
     Dates: start: 20170705
  80. FARXIGA [Suspect]
     Active Substance: DAPAGLIFLOZIN PROPANEDIOL
     Indication: Weight decreased
     Route: 048
     Dates: start: 20170705
  81. FARXIGA [Suspect]
     Active Substance: DAPAGLIFLOZIN PROPANEDIOL
     Indication: Blood pressure decreased
     Route: 048
     Dates: start: 20170705
  82. FARXIGA [Suspect]
     Active Substance: DAPAGLIFLOZIN PROPANEDIOL
     Indication: Type 2 diabetes mellitus
     Route: 048
     Dates: start: 20170803
  83. FARXIGA [Suspect]
     Active Substance: DAPAGLIFLOZIN PROPANEDIOL
     Indication: Weight decreased
     Route: 048
     Dates: start: 20170803
  84. FARXIGA [Suspect]
     Active Substance: DAPAGLIFLOZIN PROPANEDIOL
     Indication: Blood pressure decreased
     Route: 048
     Dates: start: 20170803
  85. FARXIGA [Suspect]
     Active Substance: DAPAGLIFLOZIN PROPANEDIOL
     Indication: Type 2 diabetes mellitus
     Route: 048
     Dates: start: 20170905
  86. FARXIGA [Suspect]
     Active Substance: DAPAGLIFLOZIN PROPANEDIOL
     Indication: Weight decreased
     Route: 048
     Dates: start: 20170905
  87. FARXIGA [Suspect]
     Active Substance: DAPAGLIFLOZIN PROPANEDIOL
     Indication: Blood pressure decreased
     Route: 048
     Dates: start: 20170905
  88. FARXIGA [Suspect]
     Active Substance: DAPAGLIFLOZIN PROPANEDIOL
     Indication: Type 2 diabetes mellitus
     Route: 048
     Dates: start: 20171005
  89. FARXIGA [Suspect]
     Active Substance: DAPAGLIFLOZIN PROPANEDIOL
     Indication: Weight decreased
     Route: 048
     Dates: start: 20171005
  90. FARXIGA [Suspect]
     Active Substance: DAPAGLIFLOZIN PROPANEDIOL
     Indication: Blood pressure decreased
     Route: 048
     Dates: start: 20171005
  91. FARXIGA [Suspect]
     Active Substance: DAPAGLIFLOZIN PROPANEDIOL
     Indication: Type 2 diabetes mellitus
     Route: 048
     Dates: start: 20171106
  92. FARXIGA [Suspect]
     Active Substance: DAPAGLIFLOZIN PROPANEDIOL
     Indication: Weight decreased
     Route: 048
     Dates: start: 20171106
  93. FARXIGA [Suspect]
     Active Substance: DAPAGLIFLOZIN PROPANEDIOL
     Indication: Blood pressure decreased
     Route: 048
     Dates: start: 20171106
  94. FARXIGA [Suspect]
     Active Substance: DAPAGLIFLOZIN PROPANEDIOL
     Indication: Type 2 diabetes mellitus
     Route: 048
     Dates: start: 20171206
  95. FARXIGA [Suspect]
     Active Substance: DAPAGLIFLOZIN PROPANEDIOL
     Indication: Weight decreased
     Route: 048
     Dates: start: 20171206
  96. FARXIGA [Suspect]
     Active Substance: DAPAGLIFLOZIN PROPANEDIOL
     Indication: Blood pressure decreased
     Route: 048
     Dates: start: 20171206
  97. FARXIGA [Suspect]
     Active Substance: DAPAGLIFLOZIN PROPANEDIOL
     Indication: Type 2 diabetes mellitus
     Route: 048
     Dates: start: 20171230
  98. FARXIGA [Suspect]
     Active Substance: DAPAGLIFLOZIN PROPANEDIOL
     Indication: Weight decreased
     Route: 048
     Dates: start: 20171230
  99. FARXIGA [Suspect]
     Active Substance: DAPAGLIFLOZIN PROPANEDIOL
     Indication: Blood pressure decreased
     Route: 048
     Dates: start: 20171230
  100. CHLORPHENIRAMINE MALEATE\HYDROCODONE BITARTRATE\PHENYLEPHRINE HYDROCHL [Concomitant]
     Active Substance: CHLORPHENIRAMINE MALEATE\HYDROCODONE BITARTRATE\PHENYLEPHRINE HYDROCHLORIDE
  101. CIPRO [Concomitant]
     Active Substance: CIPROFLOXACIN HYDROCHLORIDE
     Indication: Bacterial infection
     Dates: start: 2016
  102. ATROPINE SULFATE\DIPHENOXYLATE [Concomitant]
     Active Substance: ATROPINE SULFATE\DIPHENOXYLATE
  103. PROMETHAZINE [Concomitant]
     Active Substance: PROMETHAZINE HYDROCHLORIDE
     Indication: Nausea
     Dates: start: 2016
  104. METRONIDAZOLE [Concomitant]
     Active Substance: METRONIDAZOLE
  105. BIAXIN [Concomitant]
     Active Substance: CLARITHROMYCIN
  106. GLUCOTROL [Concomitant]
     Active Substance: GLIPIZIDE
  107. ZITHROMAX [Concomitant]
     Active Substance: AZITHROMYCIN DIHYDRATE
     Indication: Bacterial infection
     Dates: start: 2016
  108. ZITHROMAX [Concomitant]
     Active Substance: AZITHROMYCIN DIHYDRATE
     Indication: Bacterial infection
     Dates: start: 2017
  109. LISINOPRIL [Concomitant]
     Active Substance: LISINOPRIL
     Indication: Hypertension
     Dates: start: 2015, end: 2016
  110. CYCLOBENZAPRINE [Concomitant]
     Active Substance: CYCLOBENZAPRINE
  111. NAPROXEN [Concomitant]
     Active Substance: NAPROXEN
  112. MYTUSSIN [Concomitant]
  113. ACETAMINOPHEN\HYDROCODONE [Concomitant]
     Active Substance: ACETAMINOPHEN\HYDROCODONE
     Indication: Pain
     Dates: start: 2015
  114. SULFAMETHOXAZOLE\TRIMETHOPRIM [Concomitant]
     Active Substance: SULFAMETHOXAZOLE\TRIMETHOPRIM
     Indication: Infection
     Dates: start: 2016
  115. LEVAQUIN [Concomitant]
     Active Substance: LEVOFLOXACIN
  116. PROAIR HFA [Concomitant]
     Active Substance: ALBUTEROL SULFATE
  117. CEFDINIR [Concomitant]
     Active Substance: CEFDINIR
     Indication: Bacterial infection
     Dates: start: 2015, end: 2017
  118. METFORMIN [Concomitant]
     Active Substance: METFORMIN HYDROCHLORIDE
     Indication: Type 2 diabetes mellitus
     Dates: start: 2015, end: 2017
  119. METFORMIN [Concomitant]
     Active Substance: METFORMIN HYDROCHLORIDE
     Indication: Type 2 diabetes mellitus
     Dates: start: 2017, end: 2018
  120. AMMONIUM CHLORIDE\DEXTROMETHORPHAN\SODIUM CITRATE [Concomitant]
     Active Substance: AMMONIUM CHLORIDE\DEXTROMETHORPHAN\SODIUM CITRATE
     Indication: Cough
     Dates: start: 2015
  121. VIGAMOX [Concomitant]
     Active Substance: MOXIFLOXACIN HYDROCHLORIDE
  122. OMEPRAZOLE [Concomitant]
     Active Substance: OMEPRAZOLE
  123. SUCRALFATE [Concomitant]
     Active Substance: SUCRALFATE
  124. CARVEDILOL [Concomitant]
     Active Substance: CARVEDILOL
     Indication: Hypertension
     Dates: start: 2015, end: 2017
  125. VICTOZA [Concomitant]
     Active Substance: LIRAGLUTIDE
  126. NOREL [Concomitant]
  127. FLUTICASONE [Concomitant]
     Active Substance: FLUTICASONE
  128. SIMVASTATIN [Concomitant]
     Active Substance: SIMVASTATIN
     Indication: Blood cholesterol increased
     Dates: start: 2015, end: 2017
  129. HYDROCHLOROTHIAZIDE [Concomitant]
     Active Substance: HYDROCHLOROTHIAZIDE
     Indication: Hypertension
     Dates: start: 2015, end: 2018
  130. ANDROGEL [Concomitant]
     Active Substance: TESTOSTERONE
  131. METFORMIN HYDROCHLORIDE\PIOGLITAZONE HYDROCHLORIDE [Concomitant]
     Active Substance: METFORMIN HYDROCHLORIDE\PIOGLITAZONE HYDROCHLORIDE
     Indication: Type 2 diabetes mellitus
     Dates: start: 2015, end: 2018
  132. DEXILANT [Concomitant]
     Active Substance: DEXLANSOPRAZOLE
     Indication: Gastrooesophageal reflux disease
     Dates: start: 2015, end: 2018
  133. NICOTINE [Concomitant]
     Active Substance: NICOTINE
  134. INFLUENZA VIRUS VACCINE [Concomitant]
     Active Substance: INFLUENZA VIRUS VACCINE
  135. HYDROMORPHONE [Concomitant]
     Active Substance: HYDROMORPHONE
  136. MEPERIDINE [Concomitant]
     Active Substance: MEPERIDINE
  137. DIPHENHYDRAMINE [Concomitant]
     Active Substance: DIPHENHYDRAMINE
  138. ONDANSETRON [Concomitant]
     Active Substance: ONDANSETRON
  139. POLYETHYLENE GLYCOL [Concomitant]
     Active Substance: POLYETHYLENE GLYCOL
  140. NITROGLYCERIN [Concomitant]
     Active Substance: NITROGLYCERIN
  141. TRAMADOL [Concomitant]
     Active Substance: TRAMADOL
  142. FISH OIL [Concomitant]
     Active Substance: FISH OIL
  143. JANUVIA [Concomitant]
     Active Substance: SITAGLIPTIN PHOSPHATE
     Indication: Type 2 diabetes mellitus
     Dates: start: 2017, end: 2018
  144. LYRICA [Concomitant]
     Active Substance: PREGABALIN
  145. SENNA [Concomitant]
     Active Substance: SENNA LEAF\SENNOSIDES\SENNOSIDES A AND B
  146. MAGNESIUM SULFATE [Concomitant]
     Active Substance: MAGNESIUM SULFATE
  147. SACCHAROMYCES CEREVISIAE [Concomitant]
     Active Substance: SACCHAROMYCES CEREVISIAE
  148. NOREPINEPHRINE [Concomitant]
     Active Substance: NOREPINEPHRINE
  149. IBUPROFEN [Concomitant]
     Active Substance: IBUPROFEN
  150. HUMALOG [Concomitant]
     Active Substance: INSULIN LISPRO
  151. INSULIN GLARGINE [Concomitant]
     Active Substance: INSULIN GLARGINE
  152. LACTIC ACID [Concomitant]
     Active Substance: LACTIC ACID
  153. MAGNESIUM CITRATE [Concomitant]
     Active Substance: MAGNESIUM CITRATE
  154. CLEOCIN [Concomitant]
     Active Substance: CLINDAMYCIN PHOSPHATE
  155. OXYCODONE [Concomitant]
     Active Substance: OXYCODONE
     Indication: Pain
     Dates: start: 2016, end: 2017
  156. PERCOCET [Concomitant]
     Active Substance: ACETAMINOPHEN\OXYCODONE HYDROCHLORIDE
  157. PREDNISONE [Concomitant]
     Active Substance: PREDNISONE
     Indication: Inflammation
     Dates: start: 2016
  158. PIOGLITAZONE [Concomitant]
     Active Substance: PIOGLITAZONE
  159. MIDAZOLAM [Concomitant]
     Active Substance: MIDAZOLAM
  160. FENTANYL [Concomitant]
     Active Substance: FENTANYL
  161. CLOPIDOGREL [Concomitant]
     Active Substance: CLOPIDOGREL BISULFATE
     Indication: Blood disorder
     Dates: start: 2017, end: 2018
  162. LIDOCAINE [Concomitant]
     Active Substance: LIDOCAINE
  163. BETADINE [Concomitant]
     Active Substance: POVIDONE-IODINE
  164. ACTOPLUS MET [Concomitant]
     Active Substance: METFORMIN HYDROCHLORIDE\PIOGLITAZONE HYDROCHLORIDE
     Dates: start: 20171204
  165. ALBUTEROL [Concomitant]
     Active Substance: ALBUTEROL
  166. ACTOS [Concomitant]
     Active Substance: PIOGLITAZONE HYDROCHLORIDE
  167. CARAFATE [Concomitant]
     Active Substance: SUCRALFATE
  168. COREG [Concomitant]
     Active Substance: CARVEDILOL
  169. GLIPIZIDE [Concomitant]
     Active Substance: GLIPIZIDE
     Indication: Type 2 diabetes mellitus
     Dates: start: 2015, end: 2018
  170. CODEINE [Concomitant]
     Active Substance: CODEINE
     Indication: Pain
     Dates: start: 2016
  171. GENTAMICIN [Concomitant]
     Active Substance: GENTAMICIN
     Indication: Infection
     Dates: start: 2017
  172. ATORVASTATIN [Concomitant]
     Active Substance: ATORVASTATIN
     Indication: Blood cholesterol increased
     Dates: start: 2017, end: 2018
  173. LORATADINE [Concomitant]
     Active Substance: LORATADINE
     Indication: Multiple allergies
     Dates: start: 2017
  174. PROAIR HFA [Concomitant]
     Active Substance: ALBUTEROL SULFATE
     Indication: Bronchitis
     Dates: start: 2017
  175. CEPHALEXIN [Concomitant]
     Active Substance: CEPHALEXIN
     Indication: Infection
     Dates: start: 2017
  176. DOXYCYCLINE HYCLATE [Concomitant]
     Active Substance: DOXYCYCLINE HYCLATE
     Indication: Bacterial infection
     Dates: start: 2017
  177. TRULICITY [Concomitant]
     Active Substance: DULAGLUTIDE
     Indication: Type 2 diabetes mellitus
     Dates: start: 2017

REACTIONS (9)
  - Fournier^s gangrene [Unknown]
  - Sepsis [Unknown]
  - Septic shock [Unknown]
  - Rectal abscess [Unknown]
  - Cellulitis [Unknown]
  - Perineal cellulitis [Unknown]
  - Scrotal abscess [Unknown]
  - Perineal abscess [Unknown]
  - Necrotising fasciitis [Unknown]

NARRATIVE: CASE EVENT DATE: 20161106
